FAERS Safety Report 12047695 (Version 12)
Quarter: 2017Q3

REPORT INFORMATION
  Report Type: Report from Study
  Country: CA (occurrence: CA)
  Receive Date: 20160209
  Receipt Date: 20170809
  Transmission Date: 20171127
  Serious: Yes (Other)
  Sender: FDA-Public Use
  Company Number: CA-ROCHE-1143582

PATIENT
  Age: 54 Year
  Sex: Female
  Weight: 53 kg

DRUGS (9)
  1. ACTEMRA [Suspect]
     Active Substance: TOCILIZUMAB
     Route: 042
     Dates: start: 20121004
  2. ACTEMRA [Suspect]
     Active Substance: TOCILIZUMAB
     Route: 042
     Dates: start: 20140124
  3. ACTEMRA [Suspect]
     Active Substance: TOCILIZUMAB
     Dosage: DATE OF LAST INFUSION RECEIVED IN THE CLINICAL TRIAL: 14/FEB/2011
     Route: 042
     Dates: start: 2005
  4. ACTEMRA [Suspect]
     Active Substance: TOCILIZUMAB
     Route: 042
     Dates: start: 20131101
  5. NAPROSYN [Suspect]
     Active Substance: NAPROXEN
     Indication: RHEUMATOID ARTHRITIS
     Dosage: AS REQUIRED
     Route: 065
  6. ACTEMRA [Suspect]
     Active Substance: TOCILIZUMAB
     Route: 042
     Dates: start: 20150306
  7. LIPITOR [Concomitant]
     Active Substance: ATORVASTATIN CALCIUM
  8. ACTEMRA [Suspect]
     Active Substance: TOCILIZUMAB
     Indication: RHEUMATOID ARTHRITIS
     Dosage: FIRST RPAP INFUSION
     Route: 042
     Dates: start: 20110331
  9. METHOTREXATE. [Concomitant]
     Active Substance: METHOTREXATE

REACTIONS (52)
  - Thyroid disorder [Unknown]
  - Heart rate decreased [Unknown]
  - Gastric disorder [Unknown]
  - Flank pain [Unknown]
  - Musculoskeletal pain [Unknown]
  - Back pain [Not Recovered/Not Resolved]
  - Arthritis [Not Recovered/Not Resolved]
  - Abdominal distension [Unknown]
  - Nausea [Unknown]
  - Mouth ulceration [Recovered/Resolved]
  - Sinusitis [Unknown]
  - Nasopharyngitis [Not Recovered/Not Resolved]
  - Abdominal pain upper [Unknown]
  - Fatigue [Not Recovered/Not Resolved]
  - Intra-abdominal pressure increased [Unknown]
  - Sputum discoloured [Recovered/Resolved]
  - Constipation [Unknown]
  - Body temperature decreased [Unknown]
  - Weight decreased [Unknown]
  - Hypotension [Unknown]
  - Musculoskeletal stiffness [Not Recovered/Not Resolved]
  - Fatigue [Unknown]
  - Chills [Unknown]
  - Hypothyroidism [Unknown]
  - Nasal congestion [Not Recovered/Not Resolved]
  - Headache [Recovering/Resolving]
  - Arthralgia [Not Recovered/Not Resolved]
  - Abdominal distension [Unknown]
  - Pain [Not Recovered/Not Resolved]
  - Cough [Recovered/Resolved]
  - Abnormal faeces [Unknown]
  - Infusion related reaction [Not Recovered/Not Resolved]
  - Pneumonia [Recovered/Resolved]
  - Hyperaesthesia [Unknown]
  - Musculoskeletal stiffness [Unknown]
  - Arthritis [Unknown]
  - Insomnia [Unknown]
  - Myopia [Unknown]
  - Dizziness [Recovered/Resolved]
  - Muscle spasms [Unknown]
  - Vertigo [Not Recovered/Not Resolved]
  - Diverticulitis [Unknown]
  - Mouth ulceration [Recovered/Resolved]
  - Oropharyngeal pain [Recovered/Resolved]
  - Rheumatoid arthritis [Recovering/Resolving]
  - Bronchitis [Recovered/Resolved]
  - Nasal congestion [Recovered/Resolved]
  - Ear disorder [Not Recovered/Not Resolved]
  - Blood pressure increased [Unknown]
  - Joint stiffness [Not Recovered/Not Resolved]
  - Chills [Not Recovered/Not Resolved]
  - Stress [Not Recovered/Not Resolved]

NARRATIVE: CASE EVENT DATE: 20120810
